FAERS Safety Report 10067480 (Version 1)
Quarter: 2014Q2

REPORT INFORMATION
  Report Type: Spontaneous
  Country: JP (occurrence: None)
  Receive Date: 20140407
  Receipt Date: 20140407
  Transmission Date: 20141212
  Serious: Yes (Death)
  Sender: FDA-Public Use
  Company Number: SYM-2014-14779

PATIENT
  Sex: 0

DRUGS (3)
  1. FLUOROURACIL [Suspect]
     Indication: OESOPHAGEAL CARCINOMA
  2. CISPLATIN (CISPLATIN) (CISPLATIN) [Suspect]
     Indication: OESOPHAGEAL CARCINOMA
  3. DOCETAXEL (DOCETAXEL) (DOCETAXEL) [Suspect]
     Indication: OESOPHAGEAL CARCINOMA

REACTIONS (1)
  - Pneumonitis [None]
